FAERS Safety Report 9752269 (Version 1)
Quarter: 2013Q4

REPORT INFORMATION
  Report Type: Spontaneous
  Country: US (occurrence: US)
  Receive Date: 20131213
  Receipt Date: 20131213
  Transmission Date: 20140711
  Serious: No
  Sender: FDA-Public Use
  Company Number: US-MYLANLABS-2013S1020996

PATIENT
  Sex: Female

DRUGS (6)
  1. CLOPIDOGREL TABLETS USP [Suspect]
     Indication: STENT PLACEMENT
     Route: 048
     Dates: start: 201211, end: 201309
  2. SYNTHROID [Concomitant]
     Indication: HYPOTHYROIDISM
  3. COREG [Concomitant]
     Indication: CARDIAC DISORDER
  4. BABY ASPIRIN [Concomitant]
     Indication: CARDIAC DISORDER
  5. CRESTOR [Concomitant]
     Indication: HYPERCHOLESTEROLAEMIA
  6. GLUCOSAMINE PLUS CHONDROITIN [Concomitant]
     Indication: ARTHROPATHY

REACTIONS (1)
  - Gastrooesophageal reflux disease [Not Recovered/Not Resolved]
